FAERS Safety Report 18171915 (Version 2)
Quarter: 2021Q1

REPORT INFORMATION
  Report Type: Spontaneous
  Country: US (occurrence: US)
  Receive Date: 20200819
  Receipt Date: 20210111
  Transmission Date: 20210419
  Serious: No
  Sender: FDA-Public Use
  Company Number: US-GILEAD-2020-0489916

PATIENT
  Sex: Male
  Weight: 70.3 kg

DRUGS (33)
  1. VIREAD [Suspect]
     Active Substance: TENOFOVIR DISOPROXIL FUMARATE
     Dosage: UNK
     Route: 065
     Dates: start: 2012
  2. AMOXICILLIN. [Concomitant]
     Active Substance: AMOXICILLIN
  3. CHOLECALCIFEROL [Concomitant]
     Active Substance: CHOLECALCIFEROL
  4. CLARITHROMYCIN. [Concomitant]
     Active Substance: CLARITHROMYCIN
  5. MORPHINE [Concomitant]
     Active Substance: MORPHINE
  6. ACETAMINOPHEN AND CODEINE [Concomitant]
     Active Substance: ACETAMINOPHEN\CODEINE PHOSPHATE
  7. CEFTRIAXONE. [Concomitant]
     Active Substance: CEFTRIAXONE
  8. IBUPROFEN. [Concomitant]
     Active Substance: IBUPROFEN
  9. SODIUM CHLORIDE. [Concomitant]
     Active Substance: SODIUM CHLORIDE
  10. VIREAD [Suspect]
     Active Substance: TENOFOVIR DISOPROXIL FUMARATE
     Indication: HIV INFECTION
     Dosage: UNK
     Route: 048
     Dates: start: 2001, end: 2011
  11. ACETAMINOPHEN. [Concomitant]
     Active Substance: ACETAMINOPHEN
  12. ATAZANAVIR. [Concomitant]
     Active Substance: ATAZANAVIR
  13. AZITHROMYCIN ANHYDROUS. [Concomitant]
     Active Substance: AZITHROMYCIN ANHYDROUS
  14. CEFOXITIN [Concomitant]
     Active Substance: CEFOXITIN SODIUM
  15. GABAPENTIN. [Concomitant]
     Active Substance: GABAPENTIN
  16. METRONIDAZOLE. [Concomitant]
     Active Substance: METRONIDAZOLE
  17. DEXAMETHASONE. [Concomitant]
     Active Substance: DEXAMETHASONE
  18. KETOROLAC [Concomitant]
     Active Substance: KETOROLAC TROMETHAMINE
  19. SULFAMETHOXAZOLE AND TRIMETHOPRIM [Concomitant]
     Active Substance: SULFAMETHOXAZOLE\TRIMETHOPRIM
  20. DOXYCYCLINE. [Concomitant]
     Active Substance: DOXYCYCLINE
  21. PRAVASTATIN. [Concomitant]
     Active Substance: PRAVASTATIN
  22. TRUVADA [Suspect]
     Active Substance: EMTRICITABINE\TENOFOVIR DISOPROXIL FUMARATE
     Indication: HIV INFECTION
     Dosage: UNK
     Route: 048
     Dates: start: 20111027, end: 20170728
  23. REYATAZ [Concomitant]
     Active Substance: ATAZANAVIR SULFATE
  24. ONDANSETRON [Concomitant]
     Active Substance: ONDANSETRON
  25. ODEFSEY [Concomitant]
     Active Substance: EMTRICITABINE\RILPIVIRINE HYDROCHLORIDE\TENOFOVIR ALAFENAMIDE FUMARATE
  26. ACYCLOVIR [ACICLOVIR] [Concomitant]
     Active Substance: ACYCLOVIR
  27. CEFAZOLIN [Concomitant]
     Active Substance: CEFAZOLIN
  28. METOCLOPRAMIDE. [Concomitant]
     Active Substance: METOCLOPRAMIDE
  29. PSYLLIUM [PLANTAGO PSYLLIUM] [Concomitant]
     Active Substance: HERBALS\PLANTAGO INDICA WHOLE
  30. TRUVADA [Suspect]
     Active Substance: EMTRICITABINE\TENOFOVIR DISOPROXIL FUMARATE
     Dosage: UNK
     Route: 065
     Dates: start: 2012
  31. CLINDAMYCIN. [Concomitant]
     Active Substance: CLINDAMYCIN
  32. CIPROFLOXACIN. [Concomitant]
     Active Substance: CIPROFLOXACIN
  33. OMEPRAZOLE. [Concomitant]
     Active Substance: OMEPRAZOLE

REACTIONS (9)
  - Asthenia [Unknown]
  - Anhedonia [Not Recovered/Not Resolved]
  - Anxiety [Not Recovered/Not Resolved]
  - Emotional distress [Unknown]
  - Bone density decreased [Not Recovered/Not Resolved]
  - Pain [Unknown]
  - Protein urine [Unknown]
  - Renal impairment [Not Recovered/Not Resolved]
  - Emotional distress [Not Recovered/Not Resolved]

NARRATIVE: CASE EVENT DATE: 2013
